FAERS Safety Report 9439123 (Version 1)
Quarter: 2013Q3

REPORT INFORMATION
  Report Type: Spontaneous
  Country: US (occurrence: US)
  Receive Date: 20130802
  Receipt Date: 20130802
  Transmission Date: 20140515
  Serious: Yes (Other)
  Sender: FDA-Public Use
  Company Number: US-B.I. PHARMACEUTICALS,INC./RIDGEFIELD-2013-BI-22608BP

PATIENT
  Sex: Male

DRUGS (2)
  1. DULCOLAX TABLETS [Suspect]
  2. SENOKOT [Suspect]

REACTIONS (1)
  - Hepatic cirrhosis [Unknown]
